FAERS Safety Report 23421426 (Version 2)
Quarter: 2024Q1

REPORT INFORMATION
  Report Type: Report from Study
  Country: DE (occurrence: DE)
  Receive Date: 20240119
  Receipt Date: 20240229
  Transmission Date: 20240410
  Serious: Yes (Life-Threatening, Hospitalization, Other)
  Sender: FDA-Public Use
  Company Number: None

PATIENT
  Age: 76 Year
  Sex: Male
  Weight: 73 kg

DRUGS (24)
  1. LENALIDOMIDE [Suspect]
     Active Substance: LENALIDOMIDE
     Indication: Plasma cell myeloma
     Dosage: PER DAY ON CYCLE DAYS 1-21
     Route: 048
     Dates: start: 20230523
  2. DEXAMETHASONE [Suspect]
     Active Substance: DEXAMETHASONE
     Indication: Plasma cell myeloma
     Dosage: PER DAY ON CYCLE DAYS 1, 2, 8, 9, 15, 16, 22, 23
     Route: 048
     Dates: start: 20230330
  3. TORSEMIDE [Suspect]
     Active Substance: TORSEMIDE
     Indication: Product used for unknown indication
     Dosage: UNKNOWN
     Route: 065
  4. DARATUMUMAB [Suspect]
     Active Substance: DARATUMUMAB
     Indication: Plasma cell myeloma
     Dosage: 1800 MG PER DAY ON DAY 1 OF A 21 DAY LONG CYCLE
     Route: 058
     Dates: start: 20230330
  5. DEXAMETHASONE [Suspect]
     Active Substance: DEXAMETHASONE
     Indication: Plasma cell myeloma
     Dosage: 20 PER DAY ON CYCLE DAYS 1, 2, 8, 15, 22 OF A 21 DAYS LONG CYCLE
     Route: 048
     Dates: start: 20231025
  6. ACYCLOVIR [Concomitant]
     Active Substance: ACYCLOVIR
     Indication: Product used for unknown indication
     Dosage: UNKNOWN
     Route: 065
  7. CANDESARTAN [Concomitant]
     Active Substance: CANDESARTAN
     Indication: Product used for unknown indication
     Dosage: UNKNOWN
     Route: 065
  8. Clexane 40mg 0,4ml [Concomitant]
     Indication: Product used for unknown indication
     Dosage: 1 DOSAGE FORM, 2X PER DAY 1-0-1
     Route: 058
     Dates: start: 20230623
  9. COTRIM [Concomitant]
     Active Substance: SULFAMETHOXAZOLE\TRIMETHOPRIM
     Indication: Product used for unknown indication
     Dosage: UNKNOWN
     Route: 065
  10. ACYCLOVIR [Concomitant]
     Active Substance: ACYCLOVIR
     Indication: Product used for unknown indication
     Dosage: 400 MG, 2X PER DAY 1-0-1
     Route: 048
     Dates: start: 20230622
  11. MOVICOL Junior aroma-free [Concomitant]
     Indication: Product used for unknown indication
     Dosage: 1 DOSAGE FORM, 2X PER DAY 1-0-1, SACHET
     Route: 048
     Dates: start: 20230623
  12. PANTOPRAZOLE [Concomitant]
     Active Substance: PANTOPRAZOLE
     Indication: Product used for unknown indication
     Dosage: 40 MG, 1X PER DAY 1-0-0
     Route: 048
     Dates: start: 20230622
  13. ALDACTONE [Concomitant]
     Active Substance: SPIRONOLACTONE
     Indication: Product used for unknown indication
     Dosage: 25 MG, 1X PER DAY 1-0-0
     Route: 048
     Dates: start: 20230623
  14. Calcium-Sandoz D Osteo 500mg/400 I.U. [Concomitant]
     Indication: Product used for unknown indication
     Dosage: 1 DF, 2X PER DAY 1-0-1
     Route: 048
     Dates: start: 20230622
  15. TORSEMIDE [Concomitant]
     Active Substance: TORSEMIDE
     Indication: Product used for unknown indication
     Dosage: 10 MG, 2X PER DAY 1-1-0
     Route: 048
     Dates: start: 20230627
  16. ELIQUIS [Concomitant]
     Active Substance: APIXABAN
     Indication: Product used for unknown indication
     Dosage: UNKNOWN
     Route: 065
  17. DIMETHINDENE [Concomitant]
     Active Substance: DIMETHINDENE
     Indication: Product used for unknown indication
     Dosage: UNKNOWN
     Route: 065
  18. CALCIUM CARBONATE\CHOLECALCIFEROL [Concomitant]
     Active Substance: CALCIUM CARBONATE\CHOLECALCIFEROL
     Indication: Product used for unknown indication
     Dosage: UNKNOWN
     Route: 065
  19. DIGOXIN [Concomitant]
     Active Substance: DIGOXIN
     Indication: Product used for unknown indication
     Dosage: UNKNOWN
     Route: 065
  20. LERCANIDIPINE [Concomitant]
     Active Substance: LERCANIDIPINE
     Indication: Product used for unknown indication
     Dosage: UNKNOWN
     Route: 065
  21. METOPROLOL [Concomitant]
     Active Substance: METOPROLOL
     Indication: Product used for unknown indication
     Dosage: UNKNOWN
     Route: 065
  22. MONTELUKAST [Concomitant]
     Active Substance: MONTELUKAST SODIUM
     Indication: Product used for unknown indication
     Dosage: UNKNOWN
     Route: 065
  23. PANTOPRAZOLE [Concomitant]
     Active Substance: PANTOPRAZOLE
     Indication: Product used for unknown indication
     Dosage: UNKNOWN
     Route: 065
  24. ACETAMINOPHEN [Concomitant]
     Active Substance: ACETAMINOPHEN
     Indication: Product used for unknown indication
     Dosage: UNKNOWN
     Route: 065

REACTIONS (14)
  - White blood cell count decreased [Recovering/Resolving]
  - Haemoglobin decreased [Recovered/Resolved]
  - Vertigo [Recovering/Resolving]
  - Cardiac failure acute [Recovered/Resolved]
  - Dyspnoea [Recovered/Resolved]
  - Calculus bladder [Recovered/Resolved]
  - Fatigue [Recovered/Resolved]
  - Leukopenia [Unknown]
  - Malaise [Recovered/Resolved]
  - Neutropenia [Recovering/Resolving]
  - Renal oncocytoma [Recovered/Resolved]
  - Febrile neutropenia [Unknown]
  - Rash [Recovering/Resolving]
  - Pneumonia [Recovered/Resolved]

NARRATIVE: CASE EVENT DATE: 20230501
